FAERS Safety Report 17458466 (Version 1)
Quarter: 2020Q1

REPORT INFORMATION
  Report Type: Spontaneous
  Country: IT (occurrence: IT)
  Receive Date: 20200225
  Receipt Date: 20200225
  Transmission Date: 20200409
  Serious: Yes (Other)
  Sender: FDA-Public Use
  Company Number: IT-PFIZER INC-2020074645

PATIENT
  Age: 47 Year
  Sex: Female

DRUGS (1)
  1. TRASTUZUMAB. [Suspect]
     Active Substance: TRASTUZUMAB
     Indication: HER-2 POSITIVE BREAST CANCER
     Dosage: UNK, CYCLIC

REACTIONS (3)
  - Left atrial volume increased [Not Recovered/Not Resolved]
  - Diastolic dysfunction [Recovered/Resolved]
  - Cardiotoxicity [Recovering/Resolving]
